FAERS Safety Report 11349366 (Version 1)
Quarter: 2015Q3

REPORT INFORMATION
  Report Type: Spontaneous
  Country: US (occurrence: None)
  Receive Date: 20150630
  Receipt Date: 20150630
  Transmission Date: 20151125
  Serious: Yes (Disabling)
  Sender: FDA-Public Use
  Company Number: 2015COV00075

PATIENT
  Age: 60 Year
  Sex: Female

DRUGS (3)
  1. PLAQUENIL [Suspect]
     Active Substance: HYDROXYCHLOROQUINE SULFATE
  2. HUMIRA [Suspect]
     Active Substance: ADALIMUMAB
     Indication: ANKYLOSING SPONDYLITIS
     Dates: start: 2010
  3. HUMIRA [Suspect]
     Active Substance: ADALIMUMAB
     Indication: PSORIASIS
     Dates: start: 2010

REACTIONS (8)
  - Nystagmus [None]
  - Psoriasis [None]
  - Therapeutic response changed [None]
  - Balance disorder [None]
  - Nail discolouration [None]
  - Visual acuity reduced [None]
  - Nail disorder [None]
  - Nail pitting [None]

NARRATIVE: CASE EVENT DATE: 2010
